FAERS Safety Report 11302480 (Version 5)
Quarter: 2015Q3

REPORT INFORMATION
  Report Type: Report from Study
  Country: None (occurrence: US)
  Receive Date: 20150723
  Receipt Date: 20150924
  Transmission Date: 20151125
  Serious: Yes (Hospitalization, Other)
  Sender: FDA-Public Use
  Company Number: US-EISAI MEDICAL RESEARCH-EC-2015-007245

PATIENT
  Age: 59 Year
  Sex: Female
  Weight: 57.1 kg

DRUGS (5)
  1. LENVIMA [Suspect]
     Active Substance: LENVATINIB
     Route: 048
     Dates: start: 20150806
  2. SYNTHROID [Concomitant]
     Active Substance: LEVOTHYROXINE SODIUM
     Indication: PRODUCT USED FOR UNKNOWN INDICATION
     Dosage: 125 MCG
  3. LENVIMA [Suspect]
     Active Substance: LENVATINIB
     Indication: THYROID CANCER
     Route: 048
     Dates: start: 20150513, end: 20150605
  4. LENVIMA [Suspect]
     Active Substance: LENVATINIB
     Route: 048
     Dates: start: 2015, end: 201507
  5. LORAZEPAM. [Concomitant]
     Active Substance: LORAZEPAM
     Indication: PRODUCT USED FOR UNKNOWN INDICATION
     Dosage: 0.5 MG

REACTIONS (15)
  - Cardiomegaly [Unknown]
  - Rash pruritic [Recovering/Resolving]
  - Platelet count increased [Unknown]
  - Abdominal pain upper [Unknown]
  - Anaemia [Recovered/Resolved]
  - Haemorrhage intracranial [Recovered/Resolved]
  - Platelet count decreased [Recovered/Resolved]
  - Weight decreased [Unknown]
  - Hypertension [Unknown]
  - Pleural effusion [Recovered/Resolved]
  - Neck pain [Unknown]
  - Neuralgia [Not Recovered/Not Resolved]
  - Cardiac failure congestive [Recovered/Resolved]
  - Hepatic congestion [Unknown]
  - Headache [Not Recovered/Not Resolved]

NARRATIVE: CASE EVENT DATE: 2015
